FAERS Safety Report 24254084 (Version 1)
Quarter: 2024Q3

REPORT INFORMATION
  Report Type: Spontaneous
  Country: CN (occurrence: CN)
  Receive Date: 20240827
  Receipt Date: 20240827
  Transmission Date: 20241016
  Serious: Yes (Other)
  Sender: PFIZER
  Company Number: CN-PFIZER INC-PV202400110020

PATIENT
  Age: 36 Year
  Sex: Female

DRUGS (1)
  1. HEMABATE [Suspect]
     Active Substance: CARBOPROST TROMETHAMINE
     Indication: Abortion induced
     Dosage: 1 ML, 1X/DAY
     Route: 030
     Dates: start: 20240819, end: 20240819

REACTIONS (5)
  - Abdominal pain [Recovering/Resolving]
  - Vomiting [Recovering/Resolving]
  - Anorectal discomfort [Recovering/Resolving]
  - Diarrhoea [Recovering/Resolving]
  - Pelvic discomfort [Recovering/Resolving]

NARRATIVE: CASE EVENT DATE: 20240819
